FAERS Safety Report 9077137 (Version 1)
Quarter: 2013Q1

REPORT INFORMATION
  Report Type: Report from Study
  Country: US (occurrence: US)
  Receive Date: 20130129
  Receipt Date: 20130129
  Transmission Date: 20140127
  Serious: No
  Sender: FDA-Public Use
  Company Number: US-ABBOTT-12P-163-0942103-00

PATIENT
  Age: 64 Year
  Sex: Female

DRUGS (14)
  1. HUMIRA 40 MG/0.8 ML PEN [Suspect]
     Indication: PSORIASIS
     Dates: start: 20110101
  2. HUMIRA 40 MG/0.8 ML PEN [Suspect]
     Indication: PSORIATIC ARTHROPATHY
  3. CLOBEX SHAMPOO [Concomitant]
     Indication: PRODUCT USED FOR UNKNOWN INDICATION
     Dosage: ON 3 WEEKS THEN OFF ONE WEEK
  4. LOTION [Concomitant]
     Indication: PRODUCT USED FOR UNKNOWN INDICATION
     Dosage: EVERY DAY
  5. SPRAY [Concomitant]
     Indication: PRODUCT USED FOR UNKNOWN INDICATION
     Dosage: EVERY DAY
  6. MIRAPEX [Concomitant]
     Indication: RESTLESS LEGS SYNDROME
     Dosage: 1.0 THREE TIMES AS NEEDED
  7. ESTRADIOL [Concomitant]
     Indication: HOT FLUSH
  8. LEVOTHYROXINE [Concomitant]
     Indication: HYPOTHYROIDISM
     Dosage: DAILY
  9. PROAIR [Concomitant]
     Indication: PRODUCT USED FOR UNKNOWN INDICATION
     Route: 055
  10. NEXIUM [Concomitant]
     Indication: GASTROOESOPHAGEAL REFLUX DISEASE
  11. ALLEGRA [Concomitant]
     Indication: HYPERSENSITIVITY
     Dosage: 180 IN MORNING
  12. SINGULAIR [Concomitant]
     Indication: HYPERSENSITIVITY
     Dosage: EVERY EVENING
  13. ALBUTEROL [Concomitant]
     Indication: CHRONIC OBSTRUCTIVE PULMONARY DISEASE
     Route: 055
  14. CPAC MACHINE [Concomitant]
     Indication: SLEEP APNOEA SYNDROME

REACTIONS (1)
  - Arthralgia [Not Recovered/Not Resolved]
